FAERS Safety Report 24084064 (Version 1)
Quarter: 2024Q3

REPORT INFORMATION
  Report Type: Spontaneous
  Country: US (occurrence: None)
  Receive Date: 20240711
  Receipt Date: 20240711
  Transmission Date: 20241017
  Serious: Yes (Hospitalization)
  Sender: Public
  Company Number: None

PATIENT
  Age: 58 Year
  Sex: Male

DRUGS (1)
  1. OPSUMIT [Suspect]
     Active Substance: MACITENTAN
     Indication: Pulmonary hypertension
     Dosage: 1MG 1 TIME A DAY BY MOUTH?
     Route: 048
     Dates: start: 202009

REACTIONS (1)
  - Fluid retention [None]

NARRATIVE: CASE EVENT DATE: 20240201
